FAERS Safety Report 11269469 (Version 3)
Quarter: 2015Q3

REPORT INFORMATION
  Report Type: Report from Study
  Country: CA (occurrence: CA)
  Receive Date: 20150714
  Receipt Date: 20150727
  Transmission Date: 20151125
  Serious: Yes (Death, Life-Threatening, Hospitalization, Other)
  Sender: FDA-Public Use
  Company Number: CA-ROCHE-1601222

PATIENT
  Age: 81 Year
  Sex: Male

DRUGS (22)
  1. OXYGEN. [Concomitant]
     Active Substance: OXYGEN
  2. LINAGLIPTIN [Concomitant]
     Active Substance: LINAGLIPTIN
  3. NOVOMIX 30 [Concomitant]
     Active Substance: INSULIN ASPART
     Route: 065
  4. SECARIS [Concomitant]
     Active Substance: PROPYLENE GLYCOL
     Route: 065
  5. PRAVASTATIN SODIUM. [Concomitant]
     Active Substance: PRAVASTATIN SODIUM
  6. ANDRIOL [Concomitant]
     Active Substance: TESTOSTERONE UNDECANOATE
  7. BISOPROLOL FUMARATE. [Concomitant]
     Active Substance: BISOPROLOL FUMARATE
  8. FERROUS SULFATE [Concomitant]
     Active Substance: FERROUS SULFATE\FERROUS SULFATE, DRIED
  9. ALLOPURINOL. [Concomitant]
     Active Substance: ALLOPURINOL
  10. FUROSEMIDE. [Concomitant]
     Active Substance: FUROSEMIDE
  11. CYMBALTA [Concomitant]
     Active Substance: DULOXETINE HYDROCHLORIDE
  12. ESBRIET [Suspect]
     Active Substance: PIRFENIDONE
     Indication: IDIOPATHIC PULMONARY FIBROSIS
     Route: 048
     Dates: start: 20150512
  13. ESBRIET [Suspect]
     Active Substance: PIRFENIDONE
     Route: 048
     Dates: start: 20150526
  14. ALIGN [Concomitant]
     Active Substance: BIFIDOBACTERIUM LONGUM SUBSP. INFANTIS
  15. PANTOPRAZOLE [Concomitant]
     Active Substance: PANTOPRAZOLE SODIUM
  16. SALBUTAMOL INHALER [Concomitant]
  17. ALFUZOSIN [Concomitant]
     Active Substance: ALFUZOSIN
  18. SENNA LEAF TEA [Concomitant]
  19. ESBRIET [Suspect]
     Active Substance: PIRFENIDONE
     Route: 048
     Dates: start: 20150519
  20. IRBESARTAN. [Concomitant]
     Active Substance: IRBESARTAN
  21. TYLENOL [Concomitant]
     Active Substance: ACETAMINOPHEN
  22. CIPRALEX [Concomitant]
     Active Substance: ESCITALOPRAM OXALATE

REACTIONS (25)
  - Haematemesis [Unknown]
  - Dysphagia [Unknown]
  - Rib fracture [Unknown]
  - Implant site pain [Unknown]
  - Epistaxis [Not Recovered/Not Resolved]
  - Laceration [Unknown]
  - Renal failure [Unknown]
  - Rash [Unknown]
  - Cough [Unknown]
  - Abdominal pain upper [Unknown]
  - Chest pain [Unknown]
  - Dizziness [Unknown]
  - Oral mucosal erythema [Unknown]
  - Diarrhoea [Not Recovered/Not Resolved]
  - Respiratory failure [Fatal]
  - Epistaxis [Unknown]
  - Mouth swelling [Unknown]
  - Contusion [Unknown]
  - Fall [Unknown]
  - Multi-organ failure [Fatal]
  - Renal disorder [Unknown]
  - Haemoptysis [Unknown]
  - Chest pain [Unknown]
  - Fatigue [Unknown]
  - Decreased appetite [Unknown]

NARRATIVE: CASE EVENT DATE: 201506
